FAERS Safety Report 12437442 (Version 1)
Quarter: 2016Q2

REPORT INFORMATION
  Report Type: Spontaneous
  Country: US (occurrence: None)
  Receive Date: 20160603
  Receipt Date: 20160603
  Transmission Date: 20160815
  Serious: Yes (Disabling, Other)
  Sender: FDA-Public Use
  Company Number: None

PATIENT
  Age: 69 Year
  Sex: Female
  Weight: 79.38 kg

DRUGS (20)
  1. SYNTHROID [Concomitant]
     Active Substance: LEVOTHYROXINE SODIUM
  2. COLACE [Concomitant]
     Active Substance: DOCUSATE SODIUM
  3. FUROSEMIDE. [Concomitant]
     Active Substance: FUROSEMIDE
  4. ACETAMINOPHEN. [Concomitant]
     Active Substance: ACETAMINOPHEN
  5. FISH OIL [Concomitant]
     Active Substance: FISH OIL
  6. TRIAMCINOLONE CREAM [Concomitant]
     Active Substance: TRIAMCINOLONE
  7. VITAMIN B6 [Concomitant]
     Active Substance: PYRIDOXINE HYDROCHLORIDE
  8. ESOMEPRAZOLE [Concomitant]
     Active Substance: ESOMEPRAZOLE
  9. FENTANYL. [Concomitant]
     Active Substance: FENTANYL
  10. FOLIC ACID. [Concomitant]
     Active Substance: FOLIC ACID
  11. LUBRICATING EYE DROPS [Concomitant]
  12. OMEGA 3 [Concomitant]
     Active Substance: OMEGA-3 FATTY ACIDS
  13. TRIAMCINOLONE DENT PASTE [Concomitant]
  14. VALSARTAN. [Concomitant]
     Active Substance: VALSARTAN
  15. CYCLOBENZAPRINE [Concomitant]
     Active Substance: CYCLOBENZAPRINE
  16. LUBRICATING EYE GEL [Concomitant]
  17. ELIQUIS [Suspect]
     Active Substance: APIXABAN
     Indication: PULMONARY THROMBOSIS
     Dosage: 60 1 TABLET TWICE A DAY BY MOUTH
     Route: 048
     Dates: start: 20160330
  18. VITAMIN D3 [Concomitant]
     Active Substance: CHOLECALCIFEROL
  19. TRAMADOL. [Concomitant]
     Active Substance: TRAMADOL
  20. CHOLECALCIFEROL [Concomitant]
     Active Substance: CHOLECALCIFEROL

REACTIONS (2)
  - Lip ulceration [None]
  - Oedema [None]

NARRATIVE: CASE EVENT DATE: 201604
